FAERS Safety Report 5007651-4 (Version None)
Quarter: 2006Q2

REPORT INFORMATION
  Report Type: 
  Country: None (occurrence: None)
  Receive Date: 20060522
  Receipt Date: 20060511
  Transmission Date: 20061013
  Serious: Yes (Hospitalization)
  Sender: FDA-Public Use
  Company Number: PHHO2006JP07829

PATIENT
  Age: 72 Year
  Sex: Male

DRUGS (4)
  1. DIOVAN [Suspect]
     Indication: HYPERTENSION
     Dosage: 80 MG, QD
     Route: 048
     Dates: start: 20030314, end: 20060308
  2. ASPIRIN [Concomitant]
     Indication: MYOCARDIAL INFARCTION
     Route: 049
     Dates: start: 20030115
  3. LIPITOR [Concomitant]
     Indication: HYPERCHOLESTEROLAEMIA
     Dosage: 10 MG/DAILY
     Route: 048
     Dates: start: 20030311
  4. ARTIST [Concomitant]
     Indication: HYPERTENSION
     Dosage: 5 MG/DAILY
     Route: 048
     Dates: start: 20030311

REACTIONS (4)
  - BRONCHITIS [None]
  - GASTRIC ULCER HAEMORRHAGE [None]
  - HAEMOPTYSIS [None]
  - PRODUCTIVE COUGH [None]
